FAERS Safety Report 9631026 (Version 2)
Quarter: 2013Q4

REPORT INFORMATION
  Report Type: Spontaneous
  Country: GB (occurrence: None)
  Receive Date: 20131011
  Receipt Date: 20131101
  Transmission Date: 20140711
  Serious: Yes (Hospitalization)
  Sender: FDA-Public Use
  Company Number: 2013-1580

PATIENT
  Age: 76 Year
  Sex: Male

DRUGS (10)
  1. CARFILZOMIB [Suspect]
     Indication: PLASMA CELL MYELOMA
     Dosage: DAYS, 1, 2
     Route: 042
     Dates: start: 20130919, end: 20130920
  2. DEXAMETHASONE [Suspect]
     Indication: PLASMA CELL MYELOMA
     Dosage: DAYS 1,2,8,9,15,16,22,23 EVERY 28 DAYS, PO
     Route: 048
     Dates: start: 20130919, end: 20130920
  3. VITAMIN B12 (CYANOCBALAMIN) (CYANCOCOBALAMIN) [Concomitant]
  4. PARACETAMOL (PARACETAMOL) (PARACETAMOL) [Concomitant]
  5. ZOMORPH  (MORPHINE SULFATE) (MORPHONE SULFATE) [Concomitant]
  6. PAMIDRONATE (PAMIDRONATE DISODIUM) (PAMIDRINATE DISODIUM) [Concomitant]
  7. ACICLOVIR (ACICLOVIR) (ACICLOVIR) [Concomitant]
  8. ALLOPURINOL (ALLIPURINOL) (ALLUPRINOL) [Concomitant]
  9. METOCLOPRAMIDE (METOCLOPRAMIDE) (METOCLOPRAMIDE) [Concomitant]
  10. OMEPRAZOLE (OMEPRAZOLE) (OMEPRAZOLE) [Concomitant]

REACTIONS (4)
  - Pyrexia [None]
  - Blood pressure increased [None]
  - Fatigue [None]
  - Infection [None]
